FAERS Safety Report 19065439 (Version 2)
Quarter: 2021Q2

REPORT INFORMATION
  Report Type: Report from Study
  Country: BR (occurrence: BR)
  Receive Date: 20210327
  Receipt Date: 20210403
  Transmission Date: 20210717
  Serious: Yes (Other)
  Sender: FDA-Public Use
  Company Number: BR-UCBSA-2020041576

PATIENT
  Age: 30 Year
  Sex: Female
  Weight: 79 kg

DRUGS (5)
  1. AMOXICILINA [AMOXICILLIN] [Concomitant]
     Active Substance: AMOXICILLIN
     Indication: SUSPECTED COVID-19
     Dosage: UNK
     Route: 048
     Dates: start: 20200918, end: 20200923
  2. BRONQTRAT [Concomitant]
     Indication: SUSPECTED COVID-19
     Dosage: UNK
     Route: 048
     Dates: start: 20200918, end: 20200923
  3. IVERMECTINA [Concomitant]
     Indication: SUSPECTED COVID-19
     Dosage: UNK
     Route: 048
     Dates: start: 20200918, end: 20200923
  4. CERTOLIZUMAB PEGOL ASP [Suspect]
     Active Substance: CERTOLIZUMAB PEGOL
     Dosage: 200 MILLIGRAM, EV 15 DAYS
     Route: 058
     Dates: start: 201808
  5. CERTOLIZUMAB PEGOL ASP [Suspect]
     Active Substance: CERTOLIZUMAB PEGOL
     Indication: ANKYLOSING SPONDYLITIS
     Dosage: 400 MILLIGRAM, EV 30 DAYS
     Route: 058
     Dates: start: 201806, end: 20201228

REACTIONS (7)
  - COVID-19 [Recovered/Resolved]
  - Respiratory disorder [Recovering/Resolving]
  - Pyrexia [Recovered/Resolved]
  - Sluggishness [Recovered/Resolved]
  - Intentional dose omission [Unknown]
  - SARS-CoV-2 test negative [Unknown]
  - Quarantine [Unknown]

NARRATIVE: CASE EVENT DATE: 20200916
